FAERS Safety Report 5707277-0 (Version None)
Quarter: 2008Q2

REPORT INFORMATION
  Report Type: 
  Country: None (occurrence: None)
  Receive Date: 20080416
  Receipt Date: 20080407
  Transmission Date: 20081010
  Serious: Yes (Hospitalization)
  Sender: FDA-Public Use
  Company Number: PHHY2008JP02341

PATIENT
  Age: 27 Year
  Sex: Female

DRUGS (6)
  1. CYCLOSPORINE [Suspect]
     Indication: BONE MARROW TRANSPLANT
  2. METHOTREXATE [Suspect]
     Indication: BONE MARROW TRANSPLANT
  3. FLUOROURACIL [Concomitant]
     Indication: BONE MARROW TRANSPLANT
  4. CYCLOPHOSPHAMIDE [Concomitant]
     Indication: BONE MARROW TRANSPLANT
  5. FLUDARABINE [Concomitant]
  6. IRRADIATION [Concomitant]

REACTIONS (7)
  - ABDOMINAL PAIN [None]
  - CHRONIC GRANULOMATOUS DISEASE [None]
  - DIARRHOEA [None]
  - ENTEROCOLITIS [None]
  - HYPERTHERMIA [None]
  - MUCOSAL EROSION [None]
  - OEDEMA MUCOSAL [None]
